FAERS Safety Report 8092657-1 (Version None)
Quarter: 2012Q1

REPORT INFORMATION
  Report Type: 
  Country: None (occurrence: None)
  Receive Date: 20120131
  Receipt Date: 20120123
  Transmission Date: 20120608
  Serious: Yes (Death, Hospitalization, Other)
  Sender: FDA-Public Use
  Company Number: US-PFIZER INC-2009291940

PATIENT
  Sex: Female

DRUGS (8)
  1. DILANTIN-125 [Suspect]
     Indication: INTRACRANIAL ANEURYSM
     Dosage: UNK
     Route: 048
     Dates: start: 20010101
  2. DILANTIN [Suspect]
     Dosage: 50 MG, UNK
     Dates: start: 20010101
  3. DILANTIN [Suspect]
     Dosage: 100 MG, UNK
     Dates: start: 20010101
  4. PHENYTOIN SODIUM [Suspect]
     Dosage: 250 MG, 5 ML
     Route: 042
     Dates: start: 20010101
  5. PHENYTOIN SODIUM [Suspect]
     Dosage: 100 MG, EVERY EIGHT HOURS
     Route: 042
     Dates: start: 20011018, end: 20011025
  6. DILANTIN [Suspect]
     Dosage: 300 MG, UNK
     Dates: start: 20011102, end: 20011106
  7. PHENYTOIN SODIUM [Suspect]
     Dosage: 100MG, 2 ML
     Route: 042
     Dates: start: 20010101
  8. PHENYTOIN SODIUM [Suspect]
     Dosage: 250 MG, EVERY TWELVE HOURS
     Route: 042
     Dates: start: 20011022, end: 20011102

REACTIONS (2)
  - TOXIC EPIDERMAL NECROLYSIS [None]
  - STEVENS-JOHNSON SYNDROME [None]
